FAERS Safety Report 10281999 (Version 2)
Quarter: 2014Q3

REPORT INFORMATION
  Report Type: Report from Study
  Country: MX (occurrence: MX)
  Receive Date: 20140707
  Receipt Date: 20140804
  Transmission Date: 20150326
  Serious: Yes (Other)
  Sender: FDA-Public Use
  Company Number: PHHY2014MX083336

PATIENT
  Age: 68 Year
  Sex: Female

DRUGS (4)
  1. ACLASTA [Suspect]
     Active Substance: ZOLEDRONIC ACID
     Indication: OFF LABEL USE
     Dosage: 5 MG/100ML ANNUAL
     Route: 042
     Dates: end: 2013
  2. CALCIUM [Concomitant]
     Active Substance: CALCIUM
     Indication: SPINAL DISORDER
     Dosage: 1 UKN, DAILY
     Dates: start: 2010
  3. ACLASTA [Suspect]
     Active Substance: ZOLEDRONIC ACID
     Dosage: 5 MG/100ML ANNUAL
     Route: 042
     Dates: start: 2014
  4. ACLASTA [Suspect]
     Active Substance: ZOLEDRONIC ACID
     Indication: SPINAL DISORDER
     Dosage: 5 MG/100ML ANNUAL
     Route: 042
     Dates: start: 201007

REACTIONS (3)
  - Pain [Recovered/Resolved]
  - Fall [Recovered/Resolved]
  - Inflammation [Recovered/Resolved]

NARRATIVE: CASE EVENT DATE: 20120913
